FAERS Safety Report 4349135-2 (Version None)
Quarter: 2004Q2

REPORT INFORMATION
  Report Type: 
  Country: None (occurrence: None)
  Receive Date: 20040427
  Receipt Date: 20040427
  Transmission Date: 20050107
  Serious: Yes (Hospitalization)
  Sender: FDA-Public Use
  Company Number: None

PATIENT
  Sex: Male

DRUGS (14)
  1. CITALOPRAM [Suspect]
     Indication: DEPRESSION
     Dosage: 60 MG DAILY ORAL
     Route: 048
  2. CITALOPRAM [Suspect]
     Indication: POST-TRAUMATIC STRESS DISORDER
     Dosage: 60 MG DAILY ORAL
     Route: 048
  3. PREDNISONE [Suspect]
     Indication: PULMONARY FIBROSIS
     Dosage: 80 MG DAILY ORAL
     Route: 048
  4. ASPIRIN [Concomitant]
  5. CALCIUM/VITAMIN D [Concomitant]
  6. DILTIAZEM [Concomitant]
  7. FELODIPINE [Concomitant]
  8. FINASTERIDE [Concomitant]
  9. LISINOPRIL [Concomitant]
  10. LOPERAMIDE HCL [Concomitant]
  11. LORATADINE [Concomitant]
  12. LORAZEPAM [Concomitant]
  13. RABEPRAZOLE SODIUM [Concomitant]
  14. TERAZOSIN HCL [Concomitant]

REACTIONS (1)
  - MENTAL STATUS CHANGES [None]
